FAERS Safety Report 8524340-X (Version None)
Quarter: 2012Q2

REPORT INFORMATION
  Report Type: 
  Country: None (occurrence: None)
  Receive Date: 20120406
  Receipt Date: 20110927
  Transmission Date: 20120825
  Serious: Yes (Hospitalization)
  Sender: FDA-Public Use
  Company Number: US-CYPR-2011-000064

PATIENT
  Sex: Male
  Weight: 117.4816 kg

DRUGS (12)
  1. ASPIRIN [Suspect]
     Indication: CORONARY ARTERY DISEASE
     Dosage: (81 MG QD ORAL), (81 MG BID ORAL), (81 MG QD ORAL)
     Route: 048
     Dates: start: 20090717
  2. NIACIN [Concomitant]
  3. TAMSULOSIN HCL [Concomitant]
  4. LISINOPRIL [Concomitant]
  5. LASIX [Concomitant]
  6. CLOPIDOGREL [Suspect]
     Indication: ANTIPLATELET THERAPY
     Dosage: (75 MG QD ORAL)
     Route: 048
     Dates: start: 20101221
  7. METOPROLOL SUCCINATE [Concomitant]
  8. SIMVASTATIN [Concomitant]
  9. GLYBURIDE [Concomitant]
  10. ZINC SULFATE [Concomitant]
  11. RANITIDINE [Concomitant]
  12. CYPHER STENT [Concomitant]

REACTIONS (1)
  - NON-CARDIAC CHEST PAIN [None]
